FAERS Safety Report 4620233-9 (Version None)
Quarter: 2005Q1

REPORT INFORMATION
  Report Type: 
  Country: None (occurrence: None)
  Receive Date: 20050322
  Receipt Date: 20050322
  Transmission Date: 20050727
  Serious: Yes (Life-Threatening)
  Sender: FDA-Public Use
  Company Number: None

PATIENT
  Age: 48 Year
  Sex: Female

DRUGS (9)
  1. DEPAKOTE [Suspect]
     Indication: BIPOLAR DISORDER
     Dosage: 1500MG BID ORAL
     Route: 048
     Dates: start: 20040104, end: 20050321
  2. DEPAKOTE [Suspect]
     Indication: SCHIZOAFFECTIVE DISORDER
     Dosage: 1500MG BID ORAL
     Route: 048
     Dates: start: 20040104, end: 20050321
  3. MVI WITH MINERALS [Concomitant]
  4. LACTULOSE [Concomitant]
  5. LEVOTHYROXINE [Concomitant]
  6. DOCUSATE CALCIUM [Concomitant]
  7. QUETIAPINE [Concomitant]
  8. LAMOTRIGINE [Concomitant]
  9. DIVALPROEX SODIUM [Concomitant]

REACTIONS (3)
  - LABORATORY TEST ABNORMAL [None]
  - NEUTROPHIL COUNT DECREASED [None]
  - WHITE BLOOD CELL COUNT DECREASED [None]
